FAERS Safety Report 13805166 (Version 1)
Quarter: 2017Q3

REPORT INFORMATION
  Report Type: Spontaneous
  Country: US (occurrence: US)
  Receive Date: 20170728
  Receipt Date: 20170728
  Transmission Date: 20171127
  Serious: No
  Sender: FDA-Public Use
  Company Number: None

PATIENT
  Sex: Male

DRUGS (1)
  1. NIZATIDINE. [Suspect]
     Active Substance: NIZATIDINE

REACTIONS (3)
  - Urticaria [None]
  - Drug prescribing error [None]
  - Irritability [None]
